FAERS Safety Report 10512621 (Version 2)
Quarter: 2014Q4

REPORT INFORMATION
  Report Type: Report from Study
  Country: US (occurrence: US)
  Receive Date: 20141011
  Receipt Date: 20141011
  Transmission Date: 20150528
  Serious: Yes (Other)
  Sender: FDA-Public Use
  Company Number: PHEH2014US015507

PATIENT
  Age: 66 Year
  Sex: Male

DRUGS (1)
  1. AFINITOR [Suspect]
     Active Substance: EVEROLIMUS
     Indication: PANCREATIC CARCINOMA
     Dosage: 7.5 MG, QD
     Route: 048
     Dates: start: 20140128

REACTIONS (5)
  - Cerebrovascular accident [Unknown]
  - Joint swelling [Unknown]
  - Stomatitis [Unknown]
  - Peripheral swelling [Unknown]
  - Renal disorder [Unknown]
